FAERS Safety Report 16347396 (Version 1)
Quarter: 2019Q3

REPORT INFORMATION
  Report Type: Spontaneous
  Country: US (occurrence: US)
  Receive Date: 20190522
  Receipt Date: 20190522
  Transmission Date: 20191004
  Serious: Yes (Life-Threatening, Disabling, Other)
  Sender: FDA-Public Use
  Company Number: None

PATIENT
  Age: 40 Year
  Sex: Male
  Weight: 92.25 kg

DRUGS (9)
  1. AMBIEN [Concomitant]
     Active Substance: ZOLPIDEM TARTRATE
  2. PROBIOTICS [Concomitant]
     Active Substance: PROBIOTICS NOS
  3. GARLIC. [Concomitant]
     Active Substance: GARLIC
  4. BUPRENORPHINE-NALOXONE [Suspect]
     Active Substance: BUPRENORPHINE HYDROCHLORIDE\NALOXONE HYDROCHLORIDE
     Indication: DRUG DEPENDENCE
     Dosage: ?          QUANTITY:2 FILM;?
     Route: 060
     Dates: start: 20190313, end: 20190522
  5. APPLE CIDER VINEGAR [Concomitant]
     Active Substance: APPLE CIDER VINEGAR
  6. MILK THISTLE [Concomitant]
     Active Substance: DIETARY SUPPLEMENT\HERBALS\MILK THISTLE
  7. TUDCA [Concomitant]
  8. VITAMIN B12 [Concomitant]
     Active Substance: CYANOCOBALAMIN
  9. TUMERIC [Concomitant]
     Active Substance: HERBALS\TURMERIC

REACTIONS (9)
  - Decreased appetite [None]
  - Insomnia [None]
  - Product substitution issue [None]
  - Anxiety [None]
  - Palpitations [None]
  - Drug dependence [None]
  - Weight decreased [None]
  - Mood swings [None]
  - Fluid intake reduced [None]

NARRATIVE: CASE EVENT DATE: 20190313
